FAERS Safety Report 10228034 (Version 1)
Quarter: 2014Q2

REPORT INFORMATION
  Report Type: Spontaneous
  Country: GB (occurrence: GB)
  Receive Date: 20140610
  Receipt Date: 20140610
  Transmission Date: 20141212
  Serious: Yes (Other)
  Sender: FDA-Public Use
  Company Number: GB-PFIZER INC-2014154927

PATIENT
  Age: 76 Year
  Sex: Female

DRUGS (1)
  1. LYRICA [Suspect]
     Indication: ANXIETY

REACTIONS (4)
  - Drug withdrawal convulsions [Recovered/Resolved]
  - Malaise [Recovering/Resolving]
  - Gait disturbance [Unknown]
  - Tremor [Recovering/Resolving]
